FAERS Safety Report 4745255-9 (Version None)
Quarter: 2005Q3

REPORT INFORMATION
  Report Type: 
  Country: None (occurrence: None)
  Receive Date: 20050815
  Receipt Date: 20050808
  Transmission Date: 20060218
  Serious: Yes (Death)
  Sender: FDA-Public Use
  Company Number: PHBS2005TR11638

PATIENT
  Age: 38 Year
  Sex: Male

DRUGS (2)
  1. METHOTREXATE [Suspect]
     Indication: STEM CELL TRANSPLANT
     Route: 065
  2. CYCLOSPORINE [Suspect]
     Indication: STEM CELL TRANSPLANT
     Dosage: 12.5 MG/KG/D
     Route: 065

REACTIONS (4)
  - ABDOMINAL PAIN [None]
  - BLOOD BILIRUBIN INCREASED [None]
  - FUNGAL INFECTION [None]
  - VENOOCCLUSIVE LIVER DISEASE [None]
